FAERS Safety Report 6638730-3 (Version None)
Quarter: 2010Q1

REPORT INFORMATION
  Report Type: 
  Country: None (occurrence: None)
  Receive Date: 20100317
  Receipt Date: 20100312
  Transmission Date: 20100710
  Serious: Yes (Hospitalization)
  Sender: FDA-Public Use
  Company Number: SI-ABBOTT-09P-261-0582610-00

PATIENT
  Age: 19 Year
  Sex: Female

DRUGS (2)
  1. VALPROIC ACID [Suspect]
     Indication: OVERDOSE
     Route: 048
  2. SODIUM CHLORIDE [Concomitant]
     Indication: HYPOTENSION

REACTIONS (8)
  - ATRIAL FIBRILLATION [None]
  - BRAIN OEDEMA [None]
  - CARDIOTOXICITY [None]
  - DRUG LEVEL ABOVE THERAPEUTIC [None]
  - DRUG TOXICITY [None]
  - ELECTROCARDIOGRAM QT PROLONGED [None]
  - INTENTIONAL OVERDOSE [None]
  - MULTI-ORGAN FAILURE [None]
